FAERS Safety Report 8139335-8 (Version None)
Quarter: 2012Q1

REPORT INFORMATION
  Report Type: 
  Country: None (occurrence: None)
  Receive Date: 20120215
  Receipt Date: 20110127
  Transmission Date: 20120608
  Serious: No
  Sender: FDA-Public Use
  Company Number: US-MYLANLABS-2011S1002048

PATIENT
  Age: 67 Year
  Sex: Male
  Weight: 89.81 kg

DRUGS (4)
  1. NADOLOL [Concomitant]
     Indication: BLOOD PRESSURE INCREASED
     Route: 048
     Dates: start: 19950101
  2. AZATHIOPRINE [Concomitant]
     Indication: IMMUNOSUPPRESSION
     Route: 048
     Dates: start: 19950101
  3. PROBENECID [Suspect]
     Indication: GOUT
     Route: 048
     Dates: start: 20101222
  4. CYCLOSPORINE [Concomitant]
     Indication: IMMUNOSUPPRESSION
     Route: 048
     Dates: start: 19950101

REACTIONS (1)
  - BLOOD CREATININE INCREASED [None]
